FAERS Safety Report 13921144 (Version 1)
Quarter: 2017Q3

REPORT INFORMATION
  Report Type: Spontaneous
  Country: US (occurrence: US)
  Receive Date: 20170830
  Receipt Date: 20170830
  Transmission Date: 20171127
  Serious: No
  Sender: FDA-Public Use
  Company Number: US-GLAXOSMITHKLINE-US2017131551

PATIENT
  Age: 69 Year
  Sex: Female
  Weight: 59 kg

DRUGS (1)
  1. EQUATE NICOTINE [Suspect]
     Active Substance: NICOTINE
     Indication: SMOKING CESSATION THERAPY
     Dosage: 21 MG, QD, ONE A DAY
     Dates: start: 20170801, end: 20170809

REACTIONS (1)
  - Application site pruritus [Not Recovered/Not Resolved]
